FAERS Safety Report 10861199 (Version 1)
Quarter: 2015Q1

REPORT INFORMATION
  Report Type: Spontaneous
  Country: GB (occurrence: GB)
  Receive Date: 20150224
  Receipt Date: 20150224
  Transmission Date: 20150721
  Serious: Yes (Hospitalization)
  Sender: FDA-Public Use
  Company Number: GB-TEVA-541371ACC

PATIENT
  Age: 77 Year
  Sex: Female
  Weight: 70 kg

DRUGS (10)
  1. ATENOLOL. [Concomitant]
     Active Substance: ATENOLOL
     Dates: start: 20140913
  2. LANSOPRAZOLE. [Concomitant]
     Active Substance: LANSOPRAZOLE
     Dates: start: 20140913
  3. BETTAMOUSSE [Concomitant]
     Dates: start: 20141107, end: 20141205
  4. ZOPICLONE [Concomitant]
     Active Substance: ZOPICLONE
     Dates: start: 20140913
  5. AMLODIPINE [Concomitant]
     Active Substance: AMLODIPINE BESYLATE
     Dates: start: 20140913
  6. SIMVASTATIN. [Concomitant]
     Active Substance: SIMVASTATIN
     Dates: start: 20140913, end: 20141108
  7. CLOPIDOGREL [Concomitant]
     Active Substance: CLOPIDOGREL BISULFATE
     Dates: start: 20140913
  8. LISINOPRIL. [Concomitant]
     Active Substance: LISINOPRIL
     Dates: start: 20141107, end: 20150126
  9. AMOXICILLIN. [Suspect]
     Active Substance: AMOXICILLIN
     Dates: start: 20150204
  10. ALLOPURINOL. [Concomitant]
     Active Substance: ALLOPURINOL
     Dates: start: 20141107, end: 20150126

REACTIONS (1)
  - Obstructive airways disorder [Unknown]

NARRATIVE: CASE EVENT DATE: 20150205
